FAERS Safety Report 15227492 (Version 3)
Quarter: 2018Q3

REPORT INFORMATION
  Report Type: Report from Study
  Country: KR (occurrence: KR)
  Receive Date: 20180801
  Receipt Date: 20180827
  Transmission Date: 20181010
  Serious: Yes (Hospitalization)
  Sender: FDA-Public Use
  Company Number: KR-ROCHE-2151854

PATIENT
  Age: 48 Year
  Sex: Male
  Weight: 83 kg

DRUGS (8)
  1. COBIMETINIB. [Suspect]
     Active Substance: COBIMETINIB
     Dosage: CYCLE 48 DAY 1
     Route: 048
     Dates: start: 20180718
  2. SOLU?MEDROL [Concomitant]
     Active Substance: METHYLPREDNISOLONE SODIUM SUCCINATE
     Indication: PROPHYLAXIS
     Route: 065
     Dates: start: 20180709, end: 20180711
  3. COBIMETINIB. [Suspect]
     Active Substance: COBIMETINIB
     Indication: NEOPLASM
     Dosage: DATE OF MOST RECENT DOSE OF 40 MG COBIMETINIB PRIOR TO EVENT ONSET: 06/JUL/2018 AT 12:00
     Route: 048
     Dates: start: 20141205
  4. ATEZOLIZUMAB. [Suspect]
     Active Substance: ATEZOLIZUMAB
     Indication: NEOPLASM
     Dosage: DATE OF MOST RECENT DOSE OF ATEZOLIZUMAB PRIOR TO EVENT ONSET: 04/JUL/2018 AT 11:34?DOSE OF LAST ATE
     Route: 042
     Dates: start: 20141121
  5. RABEPRAZOLE [Concomitant]
     Active Substance: RABEPRAZOLE
     Indication: PROPHYLAXIS
     Route: 065
     Dates: start: 20180709, end: 20180715
  6. ATEZOLIZUMAB. [Suspect]
     Active Substance: ATEZOLIZUMAB
     Dosage: CYCLE 48 DAY 1
     Route: 042
     Dates: start: 20180718
  7. MUPIROCIN. [Concomitant]
     Active Substance: MUPIROCIN
     Indication: PARONYCHIA
     Route: 065
     Dates: start: 20150812
  8. PREDNISOLONE. [Concomitant]
     Active Substance: PREDNISOLONE
     Indication: PROPHYLAXIS
     Route: 065
     Dates: start: 20180712, end: 20180720

REACTIONS (2)
  - Pyrexia [Recovered/Resolved]
  - Myalgia [Recovering/Resolving]

NARRATIVE: CASE EVENT DATE: 20180706
